FAERS Safety Report 15272716 (Version 1)
Quarter: 2018Q3

REPORT INFORMATION
  Report Type: Spontaneous
  Country: US (occurrence: US)
  Receive Date: 20180813
  Receipt Date: 20180813
  Transmission Date: 20181010
  Serious: Yes (Hospitalization)
  Sender: FDA-Public Use
  Company Number: US-DEPOMED, INC.-US-2018DEP001613

PATIENT
  Sex: Male

DRUGS (1)
  1. GRALISE [Suspect]
     Active Substance: GABAPENTIN
     Indication: ANALGESIC INTERVENTION SUPPORTIVE THERAPY
     Dosage: 1800 MG, QD
     Route: 048
     Dates: start: 20170509

REACTIONS (2)
  - Asthenia [Unknown]
  - Transient ischaemic attack [Unknown]

NARRATIVE: CASE EVENT DATE: 2018
